FAERS Safety Report 11465341 (Version 1)
Quarter: 2015Q3

REPORT INFORMATION
  Report Type: Spontaneous
  Country: GB (occurrence: GB)
  Receive Date: 20150907
  Receipt Date: 20150907
  Transmission Date: 20151125
  Serious: Yes (Hospitalization, Disabling)
  Sender: FDA-Public Use
  Company Number: 1040957

PATIENT
  Age: 10 Year
  Sex: Female

DRUGS (9)
  1. AUGMENTIN [Suspect]
     Active Substance: AMOXICILLIN\CLAVULANATE POTASSIUM
     Indication: PRODUCT USED FOR UNKNOWN INDICATION
     Dosage: 3 YEARS
     Route: 065
     Dates: start: 19960101
  2. PENICILLIN                         /00000901/ [Suspect]
     Active Substance: PENICILLIN G
     Indication: PRODUCT USED FOR UNKNOWN INDICATION
     Route: 065
  3. BIOCAL-D [Concomitant]
     Indication: PRODUCT USED FOR UNKNOWN INDICATION
  4. PHENYTOIN. [Suspect]
     Active Substance: PHENYTOIN
     Indication: SEIZURE
     Route: 065
  5. VITAMINS                           /90003601/ [Concomitant]
     Active Substance: VITAMINS
     Indication: PRODUCT USED FOR UNKNOWN INDICATION
  6. ZINC [Concomitant]
     Active Substance: ZINC\ZINC CHLORIDE
     Indication: PRODUCT USED FOR UNKNOWN INDICATION
  7. LAMICTAL [Suspect]
     Active Substance: LAMOTRIGINE
     Indication: SEIZURE
     Route: 048
  8. MELATONIN [Concomitant]
     Active Substance: MELATONIN
     Indication: PRODUCT USED FOR UNKNOWN INDICATION
     Dosage: AT NIGHT
  9. IBUPROFEN. [Concomitant]
     Active Substance: IBUPROFEN
     Indication: PRODUCT USED FOR UNKNOWN INDICATION

REACTIONS (25)
  - Autism [Not Recovered/Not Resolved]
  - Upper limb fracture [Unknown]
  - Drug hypersensitivity [Unknown]
  - Epilepsy [Unknown]
  - Body temperature decreased [Unknown]
  - Upper respiratory tract infection [Unknown]
  - Seizure [Unknown]
  - Diarrhoea [Unknown]
  - Vomiting projectile [Unknown]
  - Pharyngeal oedema [Not Recovered/Not Resolved]
  - Epistaxis [Unknown]
  - Peripheral coldness [Unknown]
  - Impaired self-care [Unknown]
  - Rash [Unknown]
  - Incontinence [Unknown]
  - Urinary retention [Not Recovered/Not Resolved]
  - Candida infection [Not Recovered/Not Resolved]
  - Pain [Unknown]
  - Drug ineffective [Unknown]
  - Tremor [Unknown]
  - Abnormal faeces [Unknown]
  - Lactose intolerance [Unknown]
  - Cognitive disorder [Unknown]
  - Crying [Unknown]
  - Rash [Not Recovered/Not Resolved]

NARRATIVE: CASE EVENT DATE: 19960106
